FAERS Safety Report 9438103 (Version 1)
Quarter: 2013Q3

REPORT INFORMATION
  Report Type: Spontaneous
  Country: US (occurrence: US)
  Receive Date: 20130802
  Receipt Date: 20130802
  Transmission Date: 20140515
  Serious: No
  Sender: FDA-Public Use
  Company Number: US-BRISTOL-MYERS SQUIBB COMPANY-16828956

PATIENT
  Sex: Male

DRUGS (2)
  1. COUMADIN [Suspect]
     Dosage: DOSE DECREASED TO 5MG
     Dates: start: 20120420
  2. VERAPAMIL [Concomitant]

REACTIONS (1)
  - Night sweats [Recovered/Resolved]
